FAERS Safety Report 9325157 (Version 2)
Quarter: 2013Q3

REPORT INFORMATION
  Report Type: Spontaneous
  Country: US (occurrence: US)
  Receive Date: 20130603
  Receipt Date: 20130712
  Transmission Date: 20140515
  Serious: Yes (Hospitalization)
  Sender: FDA-Public Use
  Company Number: US-BRISTOL-MYERS SQUIBB COMPANY-18936286

PATIENT
  Age: 63 Year
  Sex: Male

DRUGS (3)
  1. GLUCOPHAGE TABS [Suspect]
     Indication: DIABETES MELLITUS
     Dosage: TABS:12JAN13-500MG3:1:D,5F13-13MR13,19MR13-6AP13-1000MG2:1:D,1AP13:1000MG3:1:D.
     Route: 048
     Dates: end: 20130401
  2. JANUVIA [Suspect]
     Indication: DIABETES MELLITUS
     Dosage: TAB:5FE13-13MR13,19MR13-06AP13,01AP13-06AP13:100MG
     Route: 048
     Dates: start: 20130112
  3. NOVOLOG [Suspect]
     Dosage: 1DF:12JA13-100UTS/ML:10AP13-100UTS/ML

REACTIONS (4)
  - Hepatic encephalopathy [Unknown]
  - Bleeding varicose vein [Unknown]
  - Diabetes mellitus inadequate control [Unknown]
  - Urinary tract infection [Unknown]
